FAERS Safety Report 15329393 (Version 4)
Quarter: 2021Q4

REPORT INFORMATION
  Report Type: Spontaneous
  Country: US (occurrence: US)
  Receive Date: 20180829
  Receipt Date: 20211214
  Transmission Date: 20220303
  Serious: No
  Sender: FDA-Public Use
  Company Number: US-VERTEX PHARMACEUTICALS-2017-001710

PATIENT
  Age: 6 Year
  Sex: Female

DRUGS (17)
  1. ORKAMBI [Suspect]
     Active Substance: IVACAFTOR\LUMACAFTOR
     Indication: Cystic fibrosis
     Dosage: 2 DF (100/125MG EACH) BID
     Route: 048
     Dates: start: 20170316
  2. ORKAMBI [Suspect]
     Active Substance: IVACAFTOR\LUMACAFTOR
     Dosage: 2 DF (100/125MG EACH) BID
     Route: 048
     Dates: end: 20180815
  3. ORKAMBI [Suspect]
     Active Substance: IVACAFTOR\LUMACAFTOR
     Dosage: UNK
     Route: 048
     Dates: end: 201901
  4. VITAMIN D [Concomitant]
     Active Substance: VITAMIN D NOS
  5. CREON [Concomitant]
     Active Substance: PANCRELIPASE AMYLASE\PANCRELIPASE LIPASE\PANCRELIPASE PROTEASE
     Dosage: UNK
     Route: 048
     Dates: start: 20170314
  6. LACTASE [Concomitant]
     Active Substance: LACTASE
  7. PULMOZYME [Concomitant]
     Active Substance: DORNASE ALFA
     Dosage: 0.025 MG
     Route: 055
     Dates: start: 20170314
  8. FLONASE [Concomitant]
     Active Substance: FLUTICASONE PROPIONATE
     Dosage: UNK
     Route: 045
     Dates: start: 20170314
  9. SYNTHROID [Concomitant]
     Active Substance: LEVOTHYROXINE SODIUM
  10. DULERA [Concomitant]
     Active Substance: FORMOTEROL FUMARATE DIHYDRATE\MOMETASONE FUROATE
     Dosage: UNK
     Route: 055
     Dates: start: 20170314
  11. ZANTAC [Concomitant]
     Active Substance: RANITIDINE HYDROCHLORIDE
  12. SODIUM CHLORIDE [Concomitant]
     Active Substance: SODIUM CHLORIDE
     Route: 055
  13. LACTOSE [Concomitant]
     Active Substance: LACTOSE
     Dosage: UNK
     Route: 048
     Dates: start: 20170314
  14. LEVALBUTEROL [Concomitant]
     Active Substance: LEVALBUTEROL
     Dosage: UNK
     Route: 055
     Dates: start: 20170314
  15. LEVOTHYROXINE [Concomitant]
     Active Substance: LEVOTHYROXINE
     Dosage: 1/2 PILL
     Route: 048
     Dates: start: 20170314
  16. VITAMIN D3 [Concomitant]
     Active Substance: CHOLECALCIFEROL
     Dosage: UNK
     Route: 048
     Dates: start: 20170314
  17. ALGY-FLANDERIL [Concomitant]

REACTIONS (2)
  - Urticaria [Recovered/Resolved]
  - Oxygen saturation decreased [Recovered/Resolved]

NARRATIVE: CASE EVENT DATE: 20170301
